FAERS Safety Report 5324364-X (Version None)
Quarter: 2007Q2

REPORT INFORMATION
  Report Type: 
  Country: None (occurrence: None)
  Receive Date: 20070509
  Receipt Date: 20070424
  Transmission Date: 20071010
  Serious: Yes (Other)
  Sender: FDA-Public Use
  Company Number: S06-ITA-03395-01

PATIENT
  Age: 75 Year
  Sex: Male

DRUGS (9)
  1. ESCITALOPRAM [Suspect]
     Indication: BLUNTED AFFECT
     Dosage: 5 MG QD PO
     Route: 048
     Dates: start: 20060227, end: 20060303
  2. ESCITALOPRAM [Suspect]
     Indication: DEPRESSED MOOD
     Dosage: 5 MG QD PO
     Route: 048
     Dates: start: 20060227, end: 20060303
  3. CARVEDILOL [Concomitant]
  4. AMIODAR (AMIODARONE HYDROCHLORIDE) [Concomitant]
  5. GLURENOR (GLIQUIDONE) [Concomitant]
  6. OMEPRAZOLE [Concomitant]
  7. ZILORYC (ALLOPURINOL) (ALLOPURINOL) [Concomitant]
  8. SODIUM BICARBONATE [Concomitant]
  9. LASIX [Concomitant]

REACTIONS (6)
  - BLOOD CREATINE PHOSPHOKINASE INCREASED [None]
  - EOSINOPHIL PERCENTAGE INCREASED [None]
  - HAEMOGLOBIN DECREASED [None]
  - LYMPHOCYTE PERCENTAGE DECREASED [None]
  - RED BLOOD CELL COUNT DECREASED [None]
  - RENAL FAILURE [None]
